FAERS Safety Report 7219205-X (Version None)
Quarter: 2011Q1

REPORT INFORMATION
  Report Type: 
  Country: None (occurrence: None)
  Receive Date: 20110111
  Receipt Date: 20110103
  Transmission Date: 20110831
  Serious: Yes (Other)
  Sender: FDA-Public Use
  Company Number: DE-GENZYME-CERZ-1001744

PATIENT

DRUGS (1)
  1. CEREZYME [Suspect]
     Indication: GAUCHER'S DISEASE
     Dosage: 4000 U, Q2W
     Dates: start: 19920101, end: 20100517

REACTIONS (2)
  - OLIGOHYDRAMNIOS [None]
  - THROMBOCYTOPENIA [None]
